FAERS Safety Report 7065535-4 (Version None)
Quarter: 2010Q4

REPORT INFORMATION
  Report Type: 
  Country: None (occurrence: None)
  Receive Date: 20101019
  Receipt Date: 20101005
  Transmission Date: 20110411
  Serious: Yes (Hospitalization)
  Sender: FDA-Public Use
  Company Number: WAES 1010USA00478

PATIENT
  Age: 71 Year
  Sex: Male
  Weight: 122.9248 kg

DRUGS (5)
  1. COZAAR [Suspect]
     Indication: HYPERTENSION
     Dosage: 50 MG/DAILY/PO
     Route: 048
     Dates: start: 20080805, end: 20081028
  2. AVODART [Concomitant]
  3. VYTORIN [Concomitant]
  4. KETOCONAZOLE [Concomitant]
  5. VITAMINS (UNSPECIFIED) [Concomitant]

REACTIONS (1)
  - CARDIAC FAILURE CONGESTIVE [None]
